FAERS Safety Report 9027455 (Version 2)
Quarter: 2013Q2

REPORT INFORMATION
  Report Type: Spontaneous
  Country: JP (occurrence: JP)
  Receive Date: 20130124
  Receipt Date: 20130502
  Transmission Date: 20140414
  Serious: Yes (Hospitalization, Other)
  Sender: FDA-Public Use
  Company Number: JP-BRISTOL-MYERS SQUIBB COMPANY-17300195

PATIENT
  Age: 80 Year
  Sex: Male

DRUGS (4)
  1. ABILIFY TABS [Suspect]
     Dosage: AT MORNING
     Route: 048
     Dates: start: 201207
  2. GASMOTIN [Concomitant]
  3. MAGMITT [Concomitant]
     Dosage: TABS
  4. XALATAN [Concomitant]
     Dosage: EYE DROPS

REACTIONS (3)
  - Epilepsy [Unknown]
  - Fall [Unknown]
  - Fracture [Unknown]
